FAERS Safety Report 8378532-3 (Version None)
Quarter: 2012Q2

REPORT INFORMATION
  Report Type: 
  Country: None (occurrence: None)
  Receive Date: 20120522
  Receipt Date: 20120517
  Transmission Date: 20120825
  Serious: Yes (Hospitalization, Other)
  Sender: FDA-Public Use
  Company Number: US-ABBOTT-11P-163-0728870-00

PATIENT
  Sex: Female
  Weight: 50.394 kg

DRUGS (4)
  1. HUMIRA [Suspect]
     Route: 058
     Dates: start: 20110801
  2. HUMIRA [Suspect]
     Route: 058
     Dates: start: 20120301
  3. HUMIRA [Suspect]
     Indication: CROHN'S DISEASE
     Route: 058
  4. PENTASA [Concomitant]
     Indication: CROHN'S DISEASE

REACTIONS (6)
  - SMALL INTESTINAL OBSTRUCTION [None]
  - OVARIAN CANCER [None]
  - CROHN'S DISEASE [None]
  - DRUG INEFFECTIVE [None]
  - ENDOMETRIAL CANCER STAGE I [None]
  - VAGINAL HAEMORRHAGE [None]
